FAERS Safety Report 4790513-5 (Version None)
Quarter: 2005Q4

REPORT INFORMATION
  Report Type: 
  Country: None (occurrence: None)
  Receive Date: 20051005
  Receipt Date: 20050921
  Transmission Date: 20060501
  Serious: Yes (Hospitalization, Other)
  Sender: FDA-Public Use
  Company Number: US_0411107616

PATIENT
  Age: 64 Year
  Weight: 73 kg

DRUGS (19)
  1. ZYPREXA [Suspect]
     Dosage: 25 MG DAY
     Dates: start: 20011001, end: 20030101
  2. SEROQUEL [Concomitant]
  3. SYMBYAX [Concomitant]
  4. APO-DIVALPROEX (VALPROATE SEMISODIUM) [Concomitant]
  5. GLUCOPHAGE [Concomitant]
  6. GLYSET (MIGLITOL) [Concomitant]
  7. STARLIX [Concomitant]
  8. ACTOS [Concomitant]
  9. AVANDIA [Concomitant]
  10. ZOLOFT [Concomitant]
  11. SONATA [Concomitant]
  12. MIRALAX [Concomitant]
  13. TRICOR [Concomitant]
  14. ALTACE (RAMIPRIL DURA) [Concomitant]
  15. PLETAL (CICLOSTAZOL) [Concomitant]
  16. PROPRANOLOL [Concomitant]
  17. LISINOPRIL (LISINOPRIL   /00894001/) [Concomitant]
  18. PRANDIN (DEFLAZACORT) [Concomitant]
  19. THIOTHIXINE [Concomitant]

REACTIONS (21)
  - ABDOMINAL PAIN [None]
  - BIPOLAR DISORDER [None]
  - BLOOD CREATINE PHOSPHOKINASE INCREASED [None]
  - CARDIO-RESPIRATORY ARREST [None]
  - CONSTIPATION [None]
  - DEPRESSED LEVEL OF CONSCIOUSNESS [None]
  - DIABETES MELLITUS [None]
  - GASTROOESOPHAGEAL REFLUX DISEASE [None]
  - HAEMATOCRIT DECREASED [None]
  - HAEMATURIA [None]
  - HAEMOGLOBIN DECREASED [None]
  - HALLUCINATION [None]
  - HIATUS HERNIA [None]
  - INCONTINENCE [None]
  - LYMPHOCYTE COUNT DECREASED [None]
  - MENTAL DISORDER [None]
  - PRESCRIBED OVERDOSE [None]
  - PSYCHOTIC DISORDER [None]
  - RED BLOOD CELL COUNT DECREASED [None]
  - URINARY TRACT INFECTION [None]
  - WEIGHT INCREASED [None]
